FAERS Safety Report 16636664 (Version 1)
Quarter: 2019Q3

REPORT INFORMATION
  Report Type: Spontaneous
  Country: JP (occurrence: JP)
  Receive Date: 20190726
  Receipt Date: 20190726
  Transmission Date: 20191004
  Serious: Yes (Hospitalization)
  Sender: FDA-Public Use
  Company Number: JP-PFIZER INC-2019308069

PATIENT

DRUGS (1)
  1. SALAZOPYRIN [Suspect]
     Active Substance: SULFASALAZINE

REACTIONS (1)
  - Pernicious anaemia [Unknown]
